FAERS Safety Report 9433809 (Version 1)
Quarter: 2013Q3

REPORT INFORMATION
  Report Type: Report from Study
  Country: MX (occurrence: MX)
  Receive Date: 20130731
  Receipt Date: 20130731
  Transmission Date: 20140515
  Serious: Yes (Disabling, Other)
  Sender: FDA-Public Use
  Company Number: PHHY2012MX115309

PATIENT
  Age: 71 Year
  Sex: Female

DRUGS (1)
  1. TEGRETOL 200 LC [Suspect]
     Indication: EPILEPSY
     Dosage: 200 MG, DAILY (1/4 TABLET AT MORNING, 1/4 AT MIDDAY AND HALF TABLET AT NIGHT)
     Route: 048

REACTIONS (5)
  - Fall [Recovered/Resolved with Sequelae]
  - Femur fracture [Recovered/Resolved with Sequelae]
  - Conjunctival disorder [Recovered/Resolved]
  - Visual acuity reduced [Recovered/Resolved]
  - Movement disorder [Unknown]
